FAERS Safety Report 8166313-5 (Version None)
Quarter: 2012Q1

REPORT INFORMATION
  Report Type: 
  Country: None (occurrence: None)
  Receive Date: 20120227
  Receipt Date: 20110617
  Transmission Date: 20120608
  Serious: No
  Sender: FDA-Public Use
  Company Number: US-MYLANLABS-2011S1011790

PATIENT
  Age: 16 Year
  Sex: Male
  Weight: 45.36 kg

DRUGS (3)
  1. ANTIBIOTICS [Concomitant]
  2. AMNESTEEM [Suspect]
     Route: 048
     Dates: start: 20110601
  3. AMNESTEEM [Suspect]
     Route: 048
     Dates: start: 20110221, end: 20110515

REACTIONS (2)
  - TONSILLITIS [None]
  - BRONCHITIS [None]
